FAERS Safety Report 9898043 (Version 1)
Quarter: 2014Q1

REPORT INFORMATION
  Report Type: Spontaneous
  Country: DE (occurrence: DE)
  Receive Date: 20140214
  Receipt Date: 20140214
  Transmission Date: 20141002
  Serious: Yes (Death)
  Sender: FDA-Public Use
  Company Number: DE-CUBIST PHARMACEUTICAL, INC.-2014CBST000156

PATIENT
  Sex: 0

DRUGS (5)
  1. CUBICIN [Suspect]
     Indication: NECROTISING FASCIITIS
     Dosage: UNK UNK, UNK
     Route: 065
  2. CUBICIN [Suspect]
     Indication: OFF LABEL USE
  3. CLINDAMYCIN [Concomitant]
     Indication: NECROTISING FASCIITIS
     Dosage: UNK UNK, UNK
     Route: 065
  4. MEROPENEM [Concomitant]
     Indication: NECROTISING FASCIITIS
     Dosage: UNK UNK, UNK
     Route: 065
  5. CATECHOLAMINES [Concomitant]
     Indication: PRODUCT USED FOR UNKNOWN INDICATION
     Dosage: UNK UNK, UNK
     Route: 065

REACTIONS (1)
  - Septic shock [Fatal]
